FAERS Safety Report 6287639-6 (Version None)
Quarter: 2009Q3

REPORT INFORMATION
  Report Type: 
  Country: None (occurrence: None)
  Receive Date: 20090727
  Receipt Date: 20090727
  Transmission Date: 20100115
  Serious: No
  Sender: FDA-Public Use
  Company Number: None

PATIENT
  Age: 32 Year
  Sex: Female

DRUGS (2)
  1. LABETALOL HCL [Suspect]
     Dosage: 200MG TID
     Dates: start: 20071001, end: 20080522
  2. ALDOMET [Suspect]
     Dosage: 250MG BID
     Dates: start: 20080301, end: 20080519

REACTIONS (7)
  - DECREASED APPETITE [None]
  - DYSPNOEA [None]
  - HYPOTHYROIDISM [None]
  - LIVER INJURY [None]
  - NAUSEA [None]
  - PLEURITIC PAIN [None]
  - WEIGHT DECREASED [None]
